FAERS Safety Report 15938464 (Version 1)
Quarter: 2019Q1

REPORT INFORMATION
  Report Type: Spontaneous
  Country: RU (occurrence: RU)
  Receive Date: 20190208
  Receipt Date: 20190208
  Transmission Date: 20190417
  Serious: Yes (Death, Life-Threatening, Other)
  Sender: FDA-Public Use
  Company Number: RU-BAYER-2019-026782

PATIENT
  Age: 85 Year
  Sex: Female

DRUGS (1)
  1. ULTRAVIST [Suspect]
     Active Substance: IOPROMIDE
     Dosage: UNK UNK, ONCE
     Route: 042
     Dates: start: 20160727, end: 20160727

REACTIONS (10)
  - Chills [None]
  - Blood pressure decreased [None]
  - Cardiac failure acute [Fatal]
  - Anaphylactoid reaction [None]
  - Circulatory collapse [None]
  - Atrial fibrillation [None]
  - Altered state of consciousness [None]
  - Asthenia [None]
  - Hypopnoea [None]
  - Body temperature increased [None]

NARRATIVE: CASE EVENT DATE: 20160727
